FAERS Safety Report 13298920 (Version 1)
Quarter: 2017Q1

REPORT INFORMATION
  Report Type: Report from Study
  Country: US (occurrence: US)
  Receive Date: 20170306
  Receipt Date: 20170306
  Transmission Date: 20170428
  Serious: Yes (Disabling, Other)
  Sender: FDA-Public Use
  Company Number: US-REGENERON PHARMACEUTICALS, INC.-2017-12593

PATIENT

DRUGS (15)
  1. BENADRYL [Concomitant]
     Active Substance: DIPHENHYDRAMINE HYDROCHLORIDE
     Indication: PROPHYLAXIS
     Dosage: 25 MG MILLIGRAM(S), AS NECESSARY
     Route: 048
     Dates: start: 20161005
  2. AMLODIPINE BESYLATE. [Concomitant]
     Active Substance: AMLODIPINE BESYLATE
     Indication: HYPERTENSION
     Dosage: 10 MG MILLIGRAM(S), UNK
     Route: 048
     Dates: start: 2010
  3. ENALAPRIL MALEATE. [Concomitant]
     Active Substance: ENALAPRIL MALEATE
     Indication: HYPERTENSION
     Dosage: 5 MG MILLIGRAM(S), QD
     Route: 048
     Dates: start: 2010
  4. HYDROCODONE/ACETAMINOPHEN [Concomitant]
     Active Substance: ACETAMINOPHEN\HYDROCODONE
     Indication: OSTEOARTHRITIS
     Dosage: 7.5-325 MG
     Route: 048
     Dates: start: 20160413
  5. ALBUTEROL SULFATE. [Concomitant]
     Active Substance: ALBUTEROL SULFATE
     Dosage: 2.5 MG MILLIGRAM(S), AS NECESSARY
     Route: 055
     Dates: start: 20130723
  6. DIFLUNISAL. [Concomitant]
     Active Substance: DIFLUNISAL
     Indication: OSTEOARTHRITIS
     Dosage: 500 MG MILLIGRAM(S), BID
     Route: 048
     Dates: start: 2010
  7. SYMBICORT [Concomitant]
     Active Substance: BUDESONIDE\FORMOTEROL FUMARATE DIHYDRATE
     Indication: CHRONIC OBSTRUCTIVE PULMONARY DISEASE
     Dosage: UNK, AS NECESSARY
     Route: 055
     Dates: start: 20130723
  8. MISOPROSTOL. [Concomitant]
     Active Substance: MISOPROSTOL
     Indication: PROPHYLAXIS
     Dosage: UNK, QD
     Route: 048
     Dates: start: 20100505
  9. VITAMIN D                          /00107901/ [Concomitant]
     Active Substance: ERGOCALCIFEROL
     Indication: VITAMIN D DEFICIENCY
     Dosage: 2000 ?G MICROGRAM(S), QD
     Route: 048
     Dates: start: 2013
  10. REGN910-3 [Suspect]
     Active Substance: AFLIBERCEPT\NESVACUMAB
     Indication: NEOVASCULAR AGE-RELATED MACULAR DEGENERATION
     Dosage: LEFT (OS), MASKED
     Route: 031
     Dates: start: 20161005
  11. ALBUTEROL SULFATE. [Concomitant]
     Active Substance: ALBUTEROL SULFATE
     Indication: CHRONIC OBSTRUCTIVE PULMONARY DISEASE
     Dosage: UNK, AS NECESSARY
     Route: 055
     Dates: start: 20130723
  12. ARTIFICIAL TEARS                   /00222401/ [Concomitant]
     Active Substance: PROPYLENE GLYCOL
     Indication: DRY EYE
     Dosage: 1 DROP AS NECESSARY, BOTH EYES
     Route: 061
     Dates: start: 2016
  13. VACCINE, TETANUS [Concomitant]
     Indication: PRODUCT USED FOR UNKNOWN INDICATION
     Dosage: 0.5 ML MILLILITRE(S), QD
     Route: 030
     Dates: start: 20161101, end: 20161101
  14. PANTOPRAZOLE [Concomitant]
     Active Substance: PANTOPRAZOLE SODIUM
     Indication: GASTROOESOPHAGEAL REFLUX DISEASE
     Dosage: 40 MG MILLIGRAM(S), QD
     Route: 048
     Dates: start: 20150624
  15. VITAMIN B12 [Concomitant]
     Active Substance: CYANOCOBALAMIN
     Indication: HYPOVITAMINOSIS
     Dosage: 1000 ?G MICROGRAM(S), MONTHLY
     Route: 048
     Dates: start: 2010

REACTIONS (1)
  - Retinal degeneration [Not Recovered/Not Resolved]

NARRATIVE: CASE EVENT DATE: 20170125
